FAERS Safety Report 9245167 (Version 5)
Quarter: 2013Q3

REPORT INFORMATION
  Report Type: Spontaneous
  Country: US (occurrence: US)
  Receive Date: 20130422
  Receipt Date: 20130709
  Transmission Date: 20140515
  Serious: Yes (Other)
  Sender: FDA-Public Use
  Company Number: US-BAYER-2013-049829

PATIENT
  Age: 18 Year
  Sex: Female

DRUGS (1)
  1. MIRENA [Suspect]
     Indication: MENORRHAGIA
     Dosage: 20 MCG/24HR, CONT
     Route: 015
     Dates: start: 20130415

REACTIONS (6)
  - Abdominal pain lower [Recovered/Resolved]
  - Post procedural haemorrhage [None]
  - Abdominal distension [None]
  - Weight increased [None]
  - Menorrhagia [Recovered/Resolved]
  - Vaginal haemorrhage [None]
